FAERS Safety Report 6648464-7 (Version None)
Quarter: 2010Q1

REPORT INFORMATION
  Report Type: 
  Country: None (occurrence: None)
  Receive Date: 20100324
  Receipt Date: 20100319
  Transmission Date: 20100710
  Serious: Yes (Other)
  Sender: FDA-Public Use
  Company Number: US-WYE-H13136810

PATIENT
  Sex: Female

DRUGS (5)
  1. TEMSIROLIMUS [Suspect]
     Indication: HEPATIC NEOPLASM MALIGNANT
     Route: 042
     Dates: start: 20091222, end: 20100101
  2. LISINOPRIL [Concomitant]
     Indication: HYPERTENSION
  3. POTASSIUM [Concomitant]
     Indication: BLOOD POTASSIUM DECREASED
  4. SORAFENIB [Concomitant]
     Indication: HEPATIC NEOPLASM MALIGNANT
  5. PHOSPHORUS [Concomitant]
     Indication: BLOOD PHOSPHORUS DECREASED

REACTIONS (5)
  - CHEST PAIN [None]
  - FACIAL PAIN [None]
  - FLUSHING [None]
  - HYPOXIA [None]
  - INFUSION RELATED REACTION [None]
